FAERS Safety Report 7034749-1 (Version None)
Quarter: 2010Q4

REPORT INFORMATION
  Report Type: 
  Country: None (occurrence: None)
  Receive Date: 20101008
  Receipt Date: 20100929
  Transmission Date: 20110411
  Serious: Yes (Other)
  Sender: FDA-Public Use
  Company Number: PHHY2010SE64536

PATIENT
  Sex: Female

DRUGS (6)
  1. ACLASTA [Suspect]
     Indication: OSTEOPOROSIS
     Dosage: 5 MG
     Dates: start: 20100801
  2. SALURES [Concomitant]
  3. PLENDIL [Concomitant]
  4. PROPRANOLOL [Concomitant]
  5. CALCICHEW-D3 [Concomitant]
  6. OMEPRAZOLE [Concomitant]

REACTIONS (1)
  - TOOTH ABSCESS [None]
